FAERS Safety Report 4640297-6 (Version None)
Quarter: 2005Q2

REPORT INFORMATION
  Report Type: 
  Country: None (occurrence: None)
  Receive Date: 20050420
  Receipt Date: 20040311
  Transmission Date: 20051028
  Serious: No
  Sender: FDA-Public Use
  Company Number: US-GLAXOSMITHKLINE-A0502369A

PATIENT
  Sex: Male

DRUGS (2)
  1. ESKALITH [Suspect]
     Route: 048
  2. LISINOPRIL [Suspect]

REACTIONS (2)
  - DRUG INTERACTION [None]
  - DRUG LEVEL INCREASED [None]
